FAERS Safety Report 13164005 (Version 1)
Quarter: 2017Q1

REPORT INFORMATION
  Report Type: Spontaneous
  Country: BA (occurrence: BA)
  Receive Date: 20170130
  Receipt Date: 20170130
  Transmission Date: 20170428
  Serious: No
  Sender: FDA-Public Use
  Company Number: BA-TOLMAR, INC.-2016BA002032

PATIENT
  Age: 65 Year
  Sex: Male

DRUGS (3)
  1. ANDROCUR [Concomitant]
     Active Substance: CYPROTERONE ACETATE
     Route: 065
  2. PRESOLOL [Concomitant]
     Route: 065
  3. ELIGARD [Suspect]
     Active Substance: LEUPROLIDE ACETATE
     Indication: PROSTATE CANCER
     Dosage: 22.5 MG, UNK
     Route: 058
     Dates: start: 20151123

REACTIONS (2)
  - Rash [Recovered/Resolved]
  - Pruritus [Recovered/Resolved]

NARRATIVE: CASE EVENT DATE: 20151123
